FAERS Safety Report 7795289-5 (Version None)
Quarter: 2011Q4

REPORT INFORMATION
  Report Type: 
  Country: None (occurrence: None)
  Receive Date: 20111004
  Receipt Date: 20110923
  Transmission Date: 20120403
  Serious: Yes (Hospitalization)
  Sender: FDA-Public Use
  Company Number: PHHY2011BR86014

PATIENT
  Age: 63 Year
  Sex: Female

DRUGS (3)
  1. FORMOTEROL FUMARATE [Suspect]
     Indication: EMPHYSEMA
  2. FORMOTEROL FUMARATE [Suspect]
     Indication: BRONCHITIS
     Dosage: 1 DF, BID (1 CAPSULE OF TREATMENT 1 + 1 CAPSULE OF TREAMENT 2)
  3. FORMOTEROL FUMARATE [Suspect]
     Indication: FIBROSIS

REACTIONS (3)
  - BRONCHITIS [None]
  - EMPHYSEMA [None]
  - FIBROSIS [None]
